FAERS Safety Report 6177142-6 (Version None)
Quarter: 2009Q2

REPORT INFORMATION
  Report Type: 
  Country: None (occurrence: None)
  Receive Date: 20090504
  Receipt Date: 20090422
  Transmission Date: 20091009
  Serious: Yes (Other)
  Sender: FDA-Public Use
  Company Number: DE-PFIZER INC-2008094061

PATIENT

DRUGS (2)
  1. CLINDAMYCIN PHOSPHATE [Suspect]
     Indication: ARTHRITIS
     Route: 042
     Dates: start: 20080428, end: 20080917
  2. CEFOTAXIME [Suspect]
     Indication: ARTHRITIS
     Route: 042
     Dates: start: 20080428, end: 20080917

REACTIONS (5)
  - AGRANULOCYTOSIS [None]
  - GINGIVAL HYPERPLASIA [None]
  - LEUKOPENIA [None]
  - NEUTROPENIA [None]
  - RASH [None]
